FAERS Safety Report 24610673 (Version 1)
Quarter: 2024Q4

REPORT INFORMATION
  Report Type: Spontaneous
  Country: US (occurrence: US)
  Receive Date: 20241112
  Receipt Date: 20241112
  Transmission Date: 20250114
  Serious: No
  Sender: PHARMING GROUP
  Company Number: US-PHARMING-PHAUS2024000991

PATIENT

DRUGS (1)
  1. RUCONEST [Suspect]
     Active Substance: CONESTAT ALFA
     Indication: Hereditary angioedema with normal C1 esterase inhibitor
     Dosage: IV INFUSION THREE TIMES A WEEK, MONDAY, WEDNESDAY AND FRIDAY
     Route: 042
     Dates: start: 2011, end: 2019

REACTIONS (2)
  - Vascular access site complication [Unknown]
  - Intentional product use issue [Unknown]
